FAERS Safety Report 5922493-0 (Version None)
Quarter: 2008Q4

REPORT INFORMATION
  Report Type: 
  Country: None (occurrence: None)
  Receive Date: 20081017
  Receipt Date: 20081007
  Transmission Date: 20090506
  Serious: Yes (Other)
  Sender: FDA-Public Use
  Company Number: PHHY2008GR22381

PATIENT
  Age: 70 Year
  Sex: Female

DRUGS (2)
  1. EUCREAS [Suspect]
     Indication: TYPE 2 DIABETES MELLITUS
     Dosage: 1DF/QD
     Route: 048
     Dates: start: 20080901, end: 20080901
  2. ANTIHYPERTENSIVE DRUGS [Concomitant]

REACTIONS (2)
  - DIZZINESS [None]
  - HYPOTENSION [None]
